FAERS Safety Report 23226472 (Version 1)
Quarter: 2023Q4

REPORT INFORMATION
  Report Type: Spontaneous
  Country: FR (occurrence: FR)
  Receive Date: 20231124
  Receipt Date: 20231124
  Transmission Date: 20240110
  Serious: Yes (Hospitalization, Other)
  Sender: FDA-Public Use
  Company Number: None

PATIENT
  Age: 80 Year
  Sex: Female
  Weight: 68 kg

DRUGS (8)
  1. TOVIAZ [Interacting]
     Active Substance: FESOTERODINE FUMARATE
     Indication: Urinary incontinence
     Dosage: 1 DF, 1X/DAY
     Route: 048
  2. ACUPAN [Interacting]
     Active Substance: NEFOPAM HYDROCHLORIDE
     Indication: Procedural pain
     Route: 048
     Dates: start: 20231019, end: 20231023
  3. MORPHINE [Interacting]
     Active Substance: MORPHINE
     Indication: Procedural pain
     Dosage: 18 MG, SINGLE
     Route: 042
     Dates: start: 20231019, end: 20231023
  4. FENOFIBRATE [Concomitant]
     Active Substance: FENOFIBRATE
     Dosage: 100 MG, 1X/DAY
     Route: 048
  5. POLYETHYLENE GLYCOLS [Concomitant]
     Active Substance: POLYETHYLENE GLYCOLS
     Route: 048
  6. ACETAMINOPHEN [Concomitant]
     Active Substance: ACETAMINOPHEN
     Route: 048
  7. MOXONIDINE [Concomitant]
     Active Substance: MOXONIDINE
     Dosage: 1 DF, 1X/DAY
     Route: 048
  8. PLASMIN [FIBRINOLYSIN] [Concomitant]
     Dosage: 600 MG, 1X/DAY
     Route: 048

REACTIONS (5)
  - Drug interaction [Unknown]
  - Drug interaction [Recovered/Resolved]
  - Seizure [Recovered/Resolved]
  - Coma [Recovered/Resolved]
  - Off label use [Unknown]

NARRATIVE: CASE EVENT DATE: 20231023
